FAERS Safety Report 16814140 (Version 1)
Quarter: 2019Q3

REPORT INFORMATION
  Report Type: Spontaneous
  Country: US (occurrence: US)
  Receive Date: 20190917
  Receipt Date: 20190917
  Transmission Date: 20191005
  Serious: No
  Sender: FDA-Public Use
  Company Number: US-ALLERGAN-1908284US

PATIENT
  Sex: Female

DRUGS (1)
  1. CARAFATE [Suspect]
     Active Substance: SUCRALFATE
     Indication: PRODUCT USED FOR UNKNOWN INDICATION
     Dosage: 10 ML, QID
     Route: 048

REACTIONS (5)
  - Product taste abnormal [Unknown]
  - Poor quality product administered [Unknown]
  - Product formulation issue [Unknown]
  - Product packaging quantity issue [Unknown]
  - Inappropriate schedule of product administration [Unknown]

NARRATIVE: CASE EVENT DATE: 20190226
